FAERS Safety Report 4488132-3 (Version None)
Quarter: 2004Q4

REPORT INFORMATION
  Report Type: 
  Country: None (occurrence: None)
  Receive Date: 20041025
  Receipt Date: 20041006
  Transmission Date: 20050328
  Serious: Yes (Hospitalization)
  Sender: FDA-Public Use
  Company Number: 2004PK01550

PATIENT
  Age: 66 Year
  Sex: Female
  Weight: 42.4 kg

DRUGS (3)
  1. IRESSA [Suspect]
     Indication: CARCINOMA
     Dosage: 500 MG DAILY; PO
     Route: 048
     Dates: start: 20040806, end: 20040830
  2. DURAGESIC [Concomitant]
  3. RANITIDINE [Concomitant]

REACTIONS (9)
  - CONDITION AGGRAVATED [None]
  - DIARRHOEA [None]
  - HEPATIC ENZYME INCREASED [None]
  - INTERSTITIAL LUNG DISEASE [None]
  - NAUSEA [None]
  - OTITIS MEDIA [None]
  - RENAL FAILURE [None]
  - URINARY TRACT INFECTION [None]
  - VOMITING [None]
